FAERS Safety Report 9461767 (Version 3)
Quarter: 2014Q2

REPORT INFORMATION
  Report Type: Report from Study
  Country: CA (occurrence: CA)
  Receive Date: 20130816
  Receipt Date: 20140404
  Transmission Date: 20141212
  Serious: Yes (Other)
  Sender: FDA-Public Use
  Company Number: CA-ROCHE-1233655

PATIENT
  Age: 61 Year
  Sex: Male
  Weight: 87.3 kg

DRUGS (11)
  1. ACTEMRA [Suspect]
     Indication: RHEUMATOID ARTHRITIS
     Route: 042
     Dates: start: 20130429
  2. PRADAX [Concomitant]
     Route: 065
  3. PREDNISONE [Concomitant]
     Dosage: 7-15 MG
     Route: 065
  4. VERPAMIL [Concomitant]
     Route: 065
  5. FLECAINIDE [Concomitant]
     Route: 065
  6. METHOTREXATE [Concomitant]
     Route: 058
  7. FOLIC ACID [Concomitant]
  8. VENTOLIN [Concomitant]
     Dosage: AS REQUIRED
     Route: 065
  9. SYMBICORT [Concomitant]
  10. FLAX OIL [Concomitant]
  11. OMEGA 3 [Concomitant]

REACTIONS (4)
  - Gastrointestinal disorder [Unknown]
  - Arthritis [Not Recovered/Not Resolved]
  - Impaired healing [Recovering/Resolving]
  - Nasopharyngitis [Not Recovered/Not Resolved]
